FAERS Safety Report 9547307 (Version 1)
Quarter: 2013Q3

REPORT INFORMATION
  Report Type: Spontaneous
  Country: US (occurrence: US)
  Receive Date: 20130924
  Receipt Date: 20130924
  Transmission Date: 20140515
  Serious: Yes (Hospitalization, Other)
  Sender: FDA-Public Use
  Company Number: US-SANOFI-AVENTIS-2013SA092058

PATIENT
  Age: 78 Year
  Sex: Male

DRUGS (5)
  1. LANTUS [Suspect]
     Indication: DIABETES MELLITUS
     Dosage: THERAPY START DATE: ABOUT 10 YEARS AGO
     Route: 048
  2. LANTUS [Suspect]
     Indication: DIABETES MELLITUS
     Dosage: THERAPY START DATE: ABOUT 10 YEARS AGO
     Route: 048
  3. LANTUS [Suspect]
     Indication: DIABETES MELLITUS
     Dosage: THERAPY START DATE: ABOUT 10 YEARS AGO
     Route: 048
  4. CORTICOSTEROID NOS [Suspect]
     Route: 065
  5. ANALGESICS [Concomitant]

REACTIONS (3)
  - Pain [Recovered/Resolved]
  - Disorientation [Recovered/Resolved]
  - Hyperglycaemia [Recovered/Resolved]
